FAERS Safety Report 9850000 (Version 1)
Quarter: 2014Q1

REPORT INFORMATION
  Report Type: Spontaneous
  Country: US (occurrence: None)
  Receive Date: 20140124
  Receipt Date: 20140124
  Transmission Date: 20141002
  Serious: Yes (Hospitalization)
  Sender: FDA-Public Use
  Company Number: CIO14002527

PATIENT
  Age: 54 Year
  Sex: Female

DRUGS (2)
  1. NYQUIL COLD AND FLU [Suspect]
     Indication: INSOMNIA
     Dosage: 1 ONLY
     Route: 048
     Dates: start: 20140110
  2. HALDOL /00027401/ (HALOPERIDOL) [Concomitant]

REACTIONS (4)
  - Somnolence [None]
  - Off label use [None]
  - Incorrect dose administered [None]
  - Intentional overdose [None]
